FAERS Safety Report 6736759-8 (Version None)
Quarter: 2010Q2

REPORT INFORMATION
  Report Type: 
  Country: None (occurrence: None)
  Receive Date: 20100521
  Receipt Date: 20100514
  Transmission Date: 20101027
  Serious: Yes (Other)
  Sender: FDA-Public Use
  Company Number: US-PFIZER INC-2010061994

PATIENT
  Sex: Female

DRUGS (1)
  1. LIPITOR [Suspect]
     Indication: BLOOD CHOLESTEROL INCREASED
     Dates: start: 20040101, end: 20100501

REACTIONS (6)
  - ABDOMINAL DISCOMFORT [None]
  - ARTHRITIS [None]
  - BACK PAIN [None]
  - GAIT DISTURBANCE [None]
  - MUSCLE SPASMS [None]
  - MYALGIA [None]
